FAERS Safety Report 23103201 (Version 1)
Quarter: 2023Q4

REPORT INFORMATION
  Report Type: Report from Study
  Country: CA (occurrence: CA)
  Receive Date: 20231025
  Receipt Date: 20231025
  Transmission Date: 20240110
  Serious: Yes (Disabling)
  Sender: FDA-Public Use
  Company Number: None

PATIENT
  Sex: Female

DRUGS (4)
  1. TOPIRAMATE [Suspect]
     Active Substance: TOPIRAMATE
     Indication: Migraine
     Dosage: 2 EVERY 1 DAY
  2. PREGABALIN [Suspect]
     Active Substance: PREGABALIN
     Indication: Migraine
     Route: 065
  3. ALMOTRIPTAN [Suspect]
     Active Substance: ALMOTRIPTAN
     Indication: Migraine
  4. TYLENOL [Concomitant]
     Active Substance: ACETAMINOPHEN
     Indication: Product used for unknown indication
     Dosage: 1 EVERY 1 WEEKS
     Route: 065

REACTIONS (5)
  - Diarrhoea [Unknown]
  - Back pain [Unknown]
  - Drug ineffective [Unknown]
  - Liver disorder [Unknown]
  - Headache [Unknown]
